FAERS Safety Report 7610307-2 (Version None)
Quarter: 2011Q3

REPORT INFORMATION
  Report Type: 
  Country: None (occurrence: None)
  Receive Date: 20110706
  Receipt Date: 20110621
  Transmission Date: 20111222
  Serious: Yes (Other)
  Sender: FDA-Public Use
  Company Number: AUR-APL-2010-02109

PATIENT
  Age: 26 Year
  Sex: Female

DRUGS (5)
  1. ONDANSETRON [Suspect]
     Indication: PROPHYLAXIS OF NAUSEA AND VOMITING
     Dosage: (4 MG)
  2. DEXAMETHASONE [Concomitant]
  3. PROPOFOL [Concomitant]
  4. FENTANYL [Concomitant]
  5. SEVOFLURANE [Concomitant]

REACTIONS (1)
  - MIGRAINE [None]
